FAERS Safety Report 25529816 (Version 1)
Quarter: 2025Q3

REPORT INFORMATION
  Report Type: Spontaneous
  Country: US (occurrence: US)
  Receive Date: 20250708
  Receipt Date: 20250708
  Transmission Date: 20251020
  Serious: Yes (Other)
  Sender: AMGEN
  Company Number: US-AMGEN-USASP2025129672

PATIENT
  Sex: Female

DRUGS (3)
  1. REPATHA [Suspect]
     Active Substance: EVOLOCUMAB
     Indication: Product used for unknown indication
     Route: 065
  2. PRALUENT [Concomitant]
     Active Substance: ALIROCUMAB
  3. EPINEPHRINE [Concomitant]
     Active Substance: EPINEPHRINE

REACTIONS (6)
  - Circulatory collapse [Unknown]
  - Hypoaesthesia [Recovered/Resolved]
  - Fatigue [Unknown]
  - Heart rate irregular [Unknown]
  - Dizziness [Unknown]
  - Product dispensing error [Unknown]
